FAERS Safety Report 19268425 (Version 3)
Quarter: 2021Q4

REPORT INFORMATION
  Report Type: Spontaneous
  Country: US (occurrence: US)
  Receive Date: 20210518
  Receipt Date: 20211008
  Transmission Date: 20220303
  Serious: No
  Sender: FDA-Public Use
  Company Number: US-SA-SAC20210514000248

PATIENT
  Age: 45 Year
  Sex: Female

DRUGS (2)
  1. DUPIXENT [Suspect]
     Active Substance: DUPILUMAB
     Indication: Sinus polyp degeneration
     Dosage: 300 MG, QOW
     Route: 058
     Dates: start: 20210114
  2. DUPIXENT [Suspect]
     Active Substance: DUPILUMAB
     Indication: Sinus polyp

REACTIONS (4)
  - Dry eye [Not Recovered/Not Resolved]
  - Arthralgia [Unknown]
  - Product use in unapproved indication [Unknown]
  - Drug ineffective [Unknown]

NARRATIVE: CASE EVENT DATE: 20210101
